FAERS Safety Report 5931969-1 (Version None)
Quarter: 2008Q4

REPORT INFORMATION
  Report Type: 
  Country: None (occurrence: None)
  Receive Date: 20081027
  Receipt Date: 20081024
  Transmission Date: 20090506
  Serious: Yes (Death, Other)
  Sender: FDA-Public Use
  Company Number: PHNR2007AU01273

PATIENT
  Sex: Male

DRUGS (4)
  1. CLOZARIL [Suspect]
     Dosage: 700MG DAILY
     Route: 048
     Dates: start: 19960215
  2. SERTRALINE [Concomitant]
  3. OSTEPINE [Concomitant]
  4. ONEPRAZOVE [Concomitant]

REACTIONS (4)
  - ARRHYTHMIA [None]
  - DEATH [None]
  - DRUG LEVEL INCREASED [None]
  - HYPERHIDROSIS [None]
